FAERS Safety Report 4913023-0 (Version None)
Quarter: 2006Q1

REPORT INFORMATION
  Report Type: 
  Country: None (occurrence: None)
  Receive Date: 20060215
  Receipt Date: 20051219
  Transmission Date: 20060701
  Serious: Yes (Hospitalization)
  Sender: FDA-Public Use
  Company Number: IT-AMGEN-UK162069

PATIENT
  Sex: Male

DRUGS (3)
  1. NEUPOGEN [Suspect]
     Indication: CHEMOTHERAPY
     Route: 058
     Dates: start: 20051202, end: 20051204
  2. GEMCITABINE [Concomitant]
     Route: 065
  3. CISPLATIN [Concomitant]
     Route: 065

REACTIONS (2)
  - ERYTHEMA [None]
  - PRURITUS [None]
